FAERS Safety Report 7124446-6 (Version None)
Quarter: 2010Q4

REPORT INFORMATION
  Report Type: 
  Country: None (occurrence: None)
  Receive Date: 20101126
  Receipt Date: 20101122
  Transmission Date: 20110411
  Serious: Yes (Other)
  Sender: FDA-Public Use
  Company Number: FR-PFIZER INC-2010155346

PATIENT
  Age: 82 Year
  Sex: Female

DRUGS (12)
  1. CELEBREX [Suspect]
     Indication: CHONDROCALCINOSIS
     Dosage: 200 MG, 2X/DAY, MORNING AND EVENING
     Dates: start: 20100801
  2. RAMIPRIL [Concomitant]
     Dosage: UNK
  3. ALLOPURINOL [Concomitant]
     Dosage: UNK
  4. NEXIUM [Concomitant]
     Dosage: UNK
  5. HYPERIUM [Concomitant]
     Dosage: UNK
  6. LASIX [Concomitant]
     Dosage: UNK
  7. KARDEGIC [Concomitant]
     Dosage: UNK
  8. ACETAMINOPHEN W/ PROPOXYPHENE HCL [Concomitant]
  9. PIASCLEDINE [Concomitant]
     Indication: OSTEOARTHRITIS
  10. UVEDOSE [Concomitant]
     Dosage: AT HIGH DOSE EVERY 3 WEEKS
  11. VOLTAREN [Concomitant]
  12. COLCHICINE [Concomitant]

REACTIONS (2)
  - DRUG ADMINISTRATION ERROR [None]
  - MYOSITIS [None]
